FAERS Safety Report 8432232-X (Version None)
Quarter: 2012Q2

REPORT INFORMATION
  Report Type: 
  Country: None (occurrence: None)
  Receive Date: 20120613
  Receipt Date: 20120607
  Transmission Date: 20120825
  Serious: Yes (Other)
  Sender: FDA-Public Use
  Company Number: BR-ABBOTT-12P-020-0940080-00

PATIENT
  Sex: Female
  Weight: 65 kg

DRUGS (4)
  1. DEPAKENE [Suspect]
     Dosage: DOSAGE DOUBLED IN 6TH MONTH OF PATIENT'S PREGNANCY
  2. DEPAKENE [Suspect]
     Indication: BIPOLAR DISORDER
     Route: 048
  3. DEPAKENE [Suspect]
     Dates: start: 20060101
  4. CLONAZEPAM [Concomitant]
     Indication: PRODUCT USED FOR UNKNOWN INDICATION
     Dates: start: 20060101

REACTIONS (4)
  - INCORRECT DOSE ADMINISTERED [None]
  - BIPOLAR DISORDER [None]
  - PAIN [None]
  - HEPATITIS B [None]
